FAERS Safety Report 16123573 (Version 3)
Quarter: 2019Q2

REPORT INFORMATION
  Report Type: Spontaneous
  Country: JP (occurrence: JP)
  Receive Date: 20190327
  Receipt Date: 20190606
  Transmission Date: 20190711
  Serious: Yes (Hospitalization, Other)
  Sender: FDA-Public Use
  Company Number: JP-BRISTOL-MYERS SQUIBB COMPANY-BMS-2018-053190

PATIENT
  Age: 49 Year
  Sex: Male
  Weight: 39.5 kg

DRUGS (10)
  1. LORAZEPAM TOWA [Concomitant]
     Indication: NAUSEA
     Dosage: 0.5 MG, Q8H
     Route: 048
     Dates: start: 20171102
  2. MAGNESIUM OXIDE. [Concomitant]
     Active Substance: MAGNESIUM OXIDE
     Indication: CONSTIPATION
     Dosage: 660 MG, Q8H
     Route: 048
     Dates: start: 20170718
  3. NAIXAN                             /00256201/ [Concomitant]
     Active Substance: NAPROXEN
     Indication: TUMOUR ASSOCIATED FEVER
     Dosage: 200 MG, Q12H
     Route: 048
     Dates: start: 20180117, end: 20180126
  4. SYMPROIC [Concomitant]
     Active Substance: NALDEMEDINE
     Indication: CONSTIPATION
     Dosage: 0.2 MG, QD
     Route: 048
     Dates: start: 20171027
  5. TRAVELMIN                          /00141802/ [Concomitant]
     Indication: NAUSEA
     Dosage: 1 DF, Q8H
     Route: 048
     Dates: start: 20171027
  6. CALONAL [Concomitant]
     Active Substance: ACETAMINOPHEN
     Indication: PAIN
     Dosage: 400 MG, Q8H
     Route: 048
     Dates: start: 20170321
  7. FENTOS [Concomitant]
     Active Substance: FENTANYL
     Indication: PAIN
     Dosage: 8 MG, QD
     Route: 062
     Dates: start: 20170729
  8. NAUZELIN [Concomitant]
     Active Substance: DOMPERIDONE
     Indication: NAUSEA
     Dosage: 10 MG, Q8H
     Route: 048
     Dates: start: 20170730
  9. OPDIVO [Suspect]
     Active Substance: NIVOLUMAB
     Indication: HEAD AND NECK CANCER
     Dosage: 132 MILLIGRAM, QD
     Route: 041
     Dates: start: 20171019, end: 20171212
  10. LANSOPRAZOLE. [Concomitant]
     Active Substance: LANSOPRAZOLE
     Indication: ABDOMINAL DISCOMFORT
     Dosage: 15 MG, QD
     Route: 048
     Dates: start: 20170707

REACTIONS (2)
  - Interstitial lung disease [Recovering/Resolving]
  - Productive cough [Unknown]

NARRATIVE: CASE EVENT DATE: 20171130
